FAERS Safety Report 13466023 (Version 1)
Quarter: 2017Q2

REPORT INFORMATION
  Report Type: Spontaneous
  Country: US (occurrence: US)
  Receive Date: 20170421
  Receipt Date: 20170421
  Transmission Date: 20170830
  Serious: No
  Sender: FDA-Public Use
  Company Number: US-PFIZER INC-2017169413

PATIENT
  Age: 74 Year
  Sex: Female

DRUGS (5)
  1. AMITRIPTYLINE HCL [Suspect]
     Active Substance: AMITRIPTYLINE
     Dosage: 10 MG, 1X/DAY (TAKE 1 TABLET BY MOUTH EVERY NIGHT AT BEDTIME)
     Route: 048
     Dates: start: 20150209
  2. GABAPENTIN. [Suspect]
     Active Substance: GABAPENTIN
     Dosage: UNK
  3. LOVASTATIN. [Suspect]
     Active Substance: LOVASTATIN
     Dosage: UNK
  4. AMITRIPTYLINE HCL [Suspect]
     Active Substance: AMITRIPTYLINE
     Indication: NEUROPATHY PERIPHERAL
     Dosage: 25 MG, 1X/DAY (TAKE 1 TABLET BY MOUTH AT BEDTIME)
     Route: 048
     Dates: start: 20140407
  5. PNEUMOVAX 23 [Suspect]
     Active Substance: PNEUMOCOCCAL VACCINE, POLYVALENT 23
     Indication: IMMUNISATION
     Dosage: UNK

REACTIONS (1)
  - Drug hypersensitivity [Not Recovered/Not Resolved]
